FAERS Safety Report 7592841-7 (Version None)
Quarter: 2011Q3

REPORT INFORMATION
  Report Type: 
  Country: None (occurrence: None)
  Receive Date: 20110706
  Receipt Date: 20110702
  Transmission Date: 20111222
  Serious: No
  Sender: FDA-Public Use
  Company Number: US-PFIZER INC-2011148120

PATIENT
  Age: 11 Year
  Sex: Male
  Weight: 72.562 kg

DRUGS (1)
  1. ADVIL LIQUI-GELS [Suspect]
     Indication: PAIN
     Dosage: UNK MG, UNK
     Route: 048

REACTIONS (1)
  - SWELLING FACE [None]
